FAERS Safety Report 8704907 (Version 5)
Quarter: 2013Q1

REPORT INFORMATION
  Report Type: Report from Study
  Country: DK (occurrence: DK)
  Receive Date: 20120803
  Receipt Date: 20130226
  Transmission Date: 20140127
  Serious: Yes (Death)
  Sender: FDA-Public Use
  Company Number: DK-PFIZER INC-2012183801

PATIENT
  Age: 51 Year
  Sex: Male

DRUGS (11)
  1. MYLOTARG [Suspect]
     Indication: ACUTE MYELOID LEUKAEMIA
     Dosage: 6 MG/M2, DAY 1 COURSE 1
     Route: 042
     Dates: start: 20110609, end: 20110618
  2. MYLOTARG [Suspect]
     Indication: MYELODYSPLASTIC SYNDROME
  3. CYTARABINE [Suspect]
     Indication: ACUTE MYELOID LEUKAEMIA
     Dosage: 100 MG/M2, ON DAYS 1-10 (20 DOSES)
     Route: 042
     Dates: start: 20110609, end: 20110618
  4. CYTARABINE [Suspect]
     Indication: MYELODYSPLASTIC SYNDROME
  5. DAUNORUBICIN HYDROCHLORIDE [Suspect]
     Indication: ACUTE MYELOID LEUKAEMIA
     Dosage: 50 MG/M2, DAYS 1,3,5 (3 DOSES)
     Route: 042
     Dates: start: 20110609, end: 20110618
  6. DAUNORUBICIN HYDROCHLORIDE [Suspect]
     Indication: MYELODYSPLASTIC SYNDROME
  7. POSACONAZOLE [Concomitant]
     Dosage: 200 MG, 3X/DAY
     Route: 048
     Dates: start: 20110614, end: 20110705
  8. PARACETAMOL [Concomitant]
     Dosage: 1 G, 4X/DAY
     Route: 048
     Dates: start: 20110620, end: 20110622
  9. CIPROFLOXACIN [Concomitant]
     Dosage: 500 MG, 2X/DAY
     Route: 048
     Dates: start: 20110608, end: 20110705
  10. AMOXICILINA + CLAVULANICO [Concomitant]
     Dosage: 1 UNK, 3X/DAY
     Dates: start: 20110608, end: 20110705
  11. TRANEXAMIC ACID [Concomitant]
     Dosage: 2 G, 4X/DAY
     Dates: start: 20110617, end: 20110624

REACTIONS (1)
  - Cerebral haemorrhage [Fatal]
